FAERS Safety Report 7332212-1 (Version None)
Quarter: 2011Q1

REPORT INFORMATION
  Report Type: 
  Country: None (occurrence: None)
  Receive Date: 20110222
  Receipt Date: 20110207
  Transmission Date: 20110831
  Serious: Yes (Other)
  Sender: FDA-Public Use
  Company Number: AUR-APL-2011-00531

PATIENT
  Age: 17 Year
  Sex: Female

DRUGS (1)
  1. TOPIRAMATE [Suspect]
     Indication: MIGRAINE PROPHYLAXIS
     Dosage: 50-75MG NIGHTLY

REACTIONS (7)
  - DEPRESSION [None]
  - MOOD SWINGS [None]
  - PARAESTHESIA [None]
  - ALOPECIA [None]
  - HEADACHE [None]
  - ALICE IN WONDERLAND SYNDROME [None]
  - AGGRESSION [None]
